FAERS Safety Report 14518128 (Version 1)
Quarter: 2018Q1

REPORT INFORMATION
  Report Type: Report from Study
  Country: HU (occurrence: HU)
  Receive Date: 20180212
  Receipt Date: 20180212
  Transmission Date: 20180509
  Serious: Yes (Death, Hospitalization)
  Sender: FDA-Public Use
  Company Number: HU-CELGENEUS-HUN-20180108504

PATIENT
  Age: 62 Year
  Sex: Female
  Weight: 43 kg

DRUGS (5)
  1. MEDROL [Concomitant]
     Active Substance: METHYLPREDNISOLONE
     Indication: PRODUCT USED FOR UNKNOWN INDICATION
     Route: 065
  2. GEMCITABINE [Suspect]
     Active Substance: GEMCITABINE\GEMCITABINE HYDROCHLORIDE
     Indication: DUCTAL ADENOCARCINOMA OF PANCREAS
     Dosage: 142.8571 MILLIGRAM/SQ. METER
     Route: 041
     Dates: start: 20171205, end: 20180108
  3. HUMAN ALBUMIN [Concomitant]
     Active Substance: ALBUMIN HUMAN
     Indication: PRODUCT USED FOR UNKNOWN INDICATION
     Route: 065
  4. ABRAXANE [Suspect]
     Active Substance: PACLITAXEL
     Indication: DUCTAL ADENOCARCINOMA OF PANCREAS
     Dosage: 17.8571 MILLIGRAM/SQ. METER
     Route: 041
     Dates: start: 20171205, end: 20180108
  5. PEGPH20 [Suspect]
     Active Substance: HYALURONIDASE RECOMBINANT HUMAN
     Indication: DUCTAL ADENOCARCINOMA OF PANCREAS
     Route: 065
     Dates: start: 20171204, end: 20171221

REACTIONS (3)
  - Neutropenia [Unknown]
  - Asthenia [Unknown]
  - Ductal adenocarcinoma of pancreas [Fatal]

NARRATIVE: CASE EVENT DATE: 20171221
